FAERS Safety Report 7685334-X (Version None)
Quarter: 2011Q3

REPORT INFORMATION
  Report Type: 
  Country: None (occurrence: None)
  Receive Date: 20110815
  Receipt Date: 20110815
  Transmission Date: 20111222
  Serious: Yes (Other)
  Sender: FDA-Public Use
  Company Number: None

PATIENT
  Sex: Female
  Weight: 67.1324 kg

DRUGS (2)
  1. NASONEX [Suspect]
     Indication: RHINITIS ALLERGIC
     Dosage: 50MCG EVERYDAY NASAL
     Route: 045
     Dates: start: 20100901
  2. FLONASE [Suspect]
     Indication: RHINITIS ALLERGIC
     Dosage: 50MCG EVERYDAY NASAL
     Route: 045
     Dates: start: 20100901

REACTIONS (2)
  - DYSPNOEA [None]
  - DIZZINESS [None]
